FAERS Safety Report 9779300 (Version 1)
Quarter: 2013Q4

REPORT INFORMATION
  Report Type: Spontaneous
  Country: CA (occurrence: CA)
  Receive Date: 20131223
  Receipt Date: 20131223
  Transmission Date: 20140711
  Serious: Yes (Life-Threatening, Hospitalization, Other)
  Sender: FDA-Public Use
  Company Number: CA-B.I. PHARMACEUTICALS,INC./RIDGEFIELD-2013-BI-43420CN

PATIENT
  Age: 81 Year
  Sex: Male

DRUGS (8)
  1. PRADAXA [Suspect]
     Dosage: 300 MG
     Route: 065
  2. BISOPROLOL [Concomitant]
  3. DIOVAN [Concomitant]
  4. FLOMAX CR [Concomitant]
     Dosage: FORMULATION: TABLET (EXTENDED RELEASE)
  5. L-THYROXINE [Concomitant]
  6. LORAZEPAM [Concomitant]
  7. ZOLOFT [Concomitant]
  8. FLOMAX CR [Concomitant]
     Dosage: FORMULATION: TABLET (EXTENDED RELEASE)

REACTIONS (5)
  - Bone marrow failure [Not Recovered/Not Resolved]
  - Haemoptysis [Not Recovered/Not Resolved]
  - Petechiae [Not Recovered/Not Resolved]
  - Thrombocytopenia [Not Recovered/Not Resolved]
  - Epistaxis [Not Recovered/Not Resolved]
